FAERS Safety Report 6303293-9 (Version None)
Quarter: 2009Q3

REPORT INFORMATION
  Report Type: 
  Country: None (occurrence: None)
  Receive Date: 20090810
  Receipt Date: 20090528
  Transmission Date: 20100115
  Serious: No
  Sender: FDA-Public Use
  Company Number: A0787583A

PATIENT
  Sex: Male

DRUGS (1)
  1. PAXIL [Suspect]
     Indication: DRUG USE FOR UNKNOWN INDICATION
     Dosage: 10MG PER DAY
     Dates: start: 20081219

REACTIONS (4)
  - CARDIAC MURMUR [None]
  - DRUG EXPOSURE VIA BREAST MILK [None]
  - GROWTH RETARDATION [None]
  - WEIGHT GAIN POOR [None]
